FAERS Safety Report 5069903-1 (Version None)
Quarter: 2006Q3

REPORT INFORMATION
  Report Type: 
  Country: None (occurrence: None)
  Receive Date: 20060731
  Receipt Date: 20060712
  Transmission Date: 20061208
  Serious: Yes (Hospitalization, Other)
  Sender: FDA-Public Use
  Company Number: IMP_2362_2006

PATIENT
  Age: 44 Year
  Sex: Female

DRUGS (1)
  1. RILUZOLE [Suspect]
     Indication: HUNTINGTON'S CHOREA
     Dosage: 50 MG BID PO
     Route: 048
     Dates: start: 20030301

REACTIONS (18)
  - AGITATION [None]
  - ANTEROGRADE AMNESIA [None]
  - ATTENTION DEFICIT/HYPERACTIVITY DISORDER [None]
  - BALANCE DISORDER [None]
  - COGNITIVE DISORDER [None]
  - CONDITION AGGRAVATED [None]
  - DISORIENTATION [None]
  - DYSARTHRIA [None]
  - ELECTROENCEPHALOGRAM ABNORMAL [None]
  - GAIT DISTURBANCE [None]
  - HEADACHE [None]
  - MEMORY IMPAIRMENT [None]
  - NAUSEA [None]
  - NEUROPSYCHOLOGICAL TEST ABNORMAL [None]
  - OVERDOSE [None]
  - RETROGRADE AMNESIA [None]
  - SPEECH DISORDER [None]
  - VISUAL DISTURBANCE [None]
